FAERS Safety Report 21606968 (Version 1)
Quarter: 2022Q4

REPORT INFORMATION
  Report Type: Spontaneous
  Country: US (occurrence: US)
  Receive Date: 20221117
  Receipt Date: 20221117
  Transmission Date: 20230112
  Serious: No
  Sender: FDA-Public Use
  Company Number: US-LUPIN PHARMACEUTICALS INC.-2022-13481

PATIENT
  Age: 39 Year
  Sex: Male

DRUGS (10)
  1. CLONIDINE [Suspect]
     Active Substance: CLONIDINE
     Indication: Drug use disorder
     Dosage: UNK
     Route: 065
  2. LOPERAMIDE [Concomitant]
     Active Substance: LOPERAMIDE
     Indication: Product used for unknown indication
     Dosage: UNK
     Route: 048
  3. LOPERAMIDE [Concomitant]
     Active Substance: LOPERAMIDE
     Dosage: 800 MG, QD
     Route: 048
  4. BUPRENORPHINE [Concomitant]
     Active Substance: BUPRENORPHINE
     Indication: Drug use disorder
     Dosage: 32 MG
     Route: 060
  5. BUPRENORPHINE [Concomitant]
     Active Substance: BUPRENORPHINE
     Indication: Drug withdrawal syndrome
     Dosage: 1.8 MILLIGRAM
     Route: 042
  6. BUPRENORPHINE [Concomitant]
     Active Substance: BUPRENORPHINE
     Dosage: 32 MG
     Route: 060
  7. BUPRENORPHINE [Concomitant]
     Active Substance: BUPRENORPHINE
     Dosage: 8 MG, TID, EVERY 8 HOURS
     Route: 060
  8. MAGNESIUM CITRATE [Concomitant]
     Active Substance: MAGNESIUM CITRATE
     Indication: Constipation
     Dosage: UNK
     Route: 065
  9. ASCORBIC ACID [Concomitant]
     Active Substance: ASCORBIC ACID
     Indication: Constipation
     Dosage: UNK
     Route: 065
  10. DIAZEPAM [Concomitant]
     Active Substance: DIAZEPAM
     Indication: Drug use disorder
     Dosage: UNK
     Route: 065

REACTIONS (1)
  - Off label use [Unknown]
